FAERS Safety Report 24333445 (Version 1)
Quarter: 2024Q3

REPORT INFORMATION
  Report Type: Spontaneous
  Country: US (occurrence: US)
  Receive Date: 20240918
  Receipt Date: 20240918
  Transmission Date: 20241017
  Serious: No
  Sender: BAYER
  Company Number: US-BAYER-2024A130293

PATIENT
  Sex: Female

DRUGS (1)
  1. MIRENA [Suspect]
     Active Substance: LEVONORGESTREL
     Dosage: 20?G/DAY
     Route: 015
     Dates: start: 2023, end: 2024

REACTIONS (3)
  - Procedural pain [None]
  - Device expulsion [Recovered/Resolved]
  - Procedural pain [None]

NARRATIVE: CASE EVENT DATE: 20230101
